FAERS Safety Report 9486253 (Version 3)
Quarter: 2013Q4

REPORT INFORMATION
  Report Type: Spontaneous
  Country: US (occurrence: US)
  Receive Date: 20130829
  Receipt Date: 20131014
  Transmission Date: 20140711
  Serious: No
  Sender: FDA-Public Use
  Company Number: US-PFIZER INC-2013244455

PATIENT
  Age: 28 Year
  Sex: Female

DRUGS (1)
  1. CLINDAMYCIN PHOSPHATE [Suspect]
     Dosage: UNK , 2X/DAY
     Route: 061

REACTIONS (3)
  - Poor quality drug administered [Unknown]
  - Product odour abnormal [Unknown]
  - Application site reaction [Unknown]
